FAERS Safety Report 8856725 (Version 1)
Quarter: 2012Q4

REPORT INFORMATION
  Report Type: Spontaneous
  Country: GB (occurrence: None)
  Receive Date: 20121019
  Receipt Date: 20121019
  Transmission Date: 20130627
  Serious: Yes (Other)
  Sender: FDA-Public Use
  Company Number: AUR-APL-2012-04428

PATIENT
  Age: 37 Year
  Sex: Female
  Weight: 123.8 kg

DRUGS (3)
  1. CITALOPRAM (CITALOPRAM) [Suspect]
     Indication: DEPRESSION
     Route: 048
  2. FEXOFENADINE [Concomitant]
  3. OMEPRAZOLE [Concomitant]

REACTIONS (3)
  - Feeling hot [None]
  - Swelling face [None]
  - Hyperhidrosis [None]
